FAERS Safety Report 5588688-3 (Version None)
Quarter: 2008Q1

REPORT INFORMATION
  Report Type: 
  Country: None (occurrence: None)
  Receive Date: 20080111
  Receipt Date: 20080108
  Transmission Date: 20080703
  Serious: Yes (Other)
  Sender: FDA-Public Use
  Company Number: A0701995A

PATIENT
  Age: 42 Year
  Sex: Female

DRUGS (3)
  1. PAROXETINE HYDROCHLORIDE [Suspect]
     Indication: DEPRESSION
     Route: 048
     Dates: start: 20040101, end: 20071201
  2. XANAX [Concomitant]
  3. DARVOCET [Concomitant]

REACTIONS (12)
  - ALOPECIA [None]
  - AMNESIA [None]
  - BLEPHAROSPASM [None]
  - DYSKINESIA [None]
  - FEELING HOT [None]
  - HANGOVER [None]
  - HEADACHE [None]
  - HYPERHIDROSIS [None]
  - PAIN [None]
  - PARAESTHESIA [None]
  - TREMOR [None]
  - VISUAL ACUITY REDUCED [None]
